FAERS Safety Report 24903685 (Version 1)
Quarter: 2025Q1

REPORT INFORMATION
  Report Type: Spontaneous
  Country: US (occurrence: None)
  Receive Date: 20250129
  Receipt Date: 20250129
  Transmission Date: 20250409
  Serious: Yes (Hospitalization)
  Sender: FDA-CTU
  Company Number: None

PATIENT
  Age: 69 Year
  Sex: Male
  Weight: 75.3 kg

DRUGS (1)
  1. PEMBROLIZUMAB [Suspect]
     Active Substance: PEMBROLIZUMAB
     Indication: Squamous cell carcinoma of the oral cavity
     Route: 042
     Dates: start: 20241028

REACTIONS (2)
  - Road traffic accident [None]
  - Alcohol poisoning [None]

NARRATIVE: CASE EVENT DATE: 20250128
